FAERS Safety Report 17707625 (Version 2)
Quarter: 2020Q2

REPORT INFORMATION
  Report Type: Report from Study
  Country: None (occurrence: DE)
  Receive Date: 20200424
  Receipt Date: 20200506
  Transmission Date: 20200714
  Serious: Yes (Hospitalization, Other)
  Sender: FDA-Public Use
  Company Number: DE-ABBVIE-20K-062-3378108-00

PATIENT
  Age: 64 Year
  Sex: Male
  Weight: 75 kg

DRUGS (7)
  1. RINVOQ [Suspect]
     Active Substance: UPADACITINIB
     Indication: RHEUMATOID ARTHRITIS
     Route: 048
     Dates: start: 20200207, end: 202002
  2. DEKRISTOL [Concomitant]
     Active Substance: CHOLECALCIFEROL
     Indication: PRODUCT USED FOR UNKNOWN INDICATION
  3. FELODIPIN [Concomitant]
     Active Substance: FELODIPINE
     Indication: HYPERTENSION
     Route: 048
     Dates: start: 2010
  4. PREDNISOLON [Concomitant]
     Active Substance: PREDNISOLONE
     Indication: PRODUCT USED FOR UNKNOWN INDICATION
     Route: 048
     Dates: start: 2010
  5. RINVOQ [Suspect]
     Active Substance: UPADACITINIB
     Route: 048
     Dates: start: 20200226
  6. CANDESARTAN. [Concomitant]
     Active Substance: CANDESARTAN
     Indication: HYPERTENSION
     Route: 048
     Dates: start: 2010
  7. PANTOPRAZOL [Concomitant]
     Active Substance: PANTOPRAZOLE SODIUM
     Indication: GASTRITIS

REACTIONS (40)
  - Pulmonary valve disease [Unknown]
  - Lung disorder [Unknown]
  - Mean cell volume increased [Unknown]
  - Blood creatinine increased [Unknown]
  - Blood glucose increased [Unknown]
  - Lipids increased [Unknown]
  - Pseudomonas infection [Unknown]
  - Blood cholesterol increased [Unknown]
  - Aortic valve incompetence [Unknown]
  - Cardiac disorder [Unknown]
  - Unevaluable event [Unknown]
  - Mean cell haemoglobin concentration increased [Unknown]
  - Emotional distress [Unknown]
  - Angiosclerosis [Unknown]
  - Angiogram abnormal [Unknown]
  - Hyperintensity in brain deep nuclei [Unknown]
  - Dermatitis [Not Recovered/Not Resolved]
  - Red blood cell count decreased [Unknown]
  - Sinus polyp [Unknown]
  - Sensorimotor disorder [Unknown]
  - Pustule [Not Recovered/Not Resolved]
  - Hypertensive heart disease [Unknown]
  - Bacterial test positive [Unknown]
  - Magnetic resonance imaging brain abnormal [Unknown]
  - Left ventricular hypertrophy [Unknown]
  - Carotid artery dolichoectasia [Unknown]
  - Magnetic resonance imaging brain abnormal [Unknown]
  - Diastolic dysfunction [Unknown]
  - Acne pustular [Not Recovered/Not Resolved]
  - Mean cell haemoglobin increased [Unknown]
  - Glomerular filtration rate decreased [Unknown]
  - Tricuspid valve incompetence [Unknown]
  - Affective disorder [Unknown]
  - Diarrhoea [Recovered/Resolved]
  - Cerebrovascular accident [Recovered/Resolved]
  - Pulmonary valve incompetence [Unknown]
  - Paraesthesia [Unknown]
  - Carotid arteriosclerosis [Unknown]
  - Spinal osteoarthritis [Unknown]
  - Gliosis [Unknown]

NARRATIVE: CASE EVENT DATE: 2020
